FAERS Safety Report 9286802 (Version 1)
Quarter: 2013Q2

REPORT INFORMATION
  Report Type: Spontaneous
  Country: IT (occurrence: None)
  Receive Date: 20130508
  Receipt Date: 20130508
  Transmission Date: 20140414
  Serious: Yes (Hospitalization)
  Sender: FDA-Public Use
  Company Number: 1694755

PATIENT
  Age: 73 Year
  Sex: Female

DRUGS (4)
  1. EPIRUBICIN HYDROCHLORIDE [Suspect]
     Indication: INTRADUCTAL PROLIFERATIVE BREAST LESION
     Dosage: CYCLICAL
  2. FLUOROURACIL [Suspect]
     Indication: INTRADUCTAL PROLIFERATIVE BREAST LESION
     Dosage: CYCLICAL
  3. CYCLOPHOSPHAMIDE [Suspect]
     Indication: INTRADUCTAL PROLIFERATIVE BREAST LESION
     Dosage: CYCLICAL
  4. THERAPEUTIC RADIOPHARMACEUTICALS [Concomitant]

REACTIONS (4)
  - Endocarditis [None]
  - Yersinia infection [None]
  - Sinus tachycardia [None]
  - Aortic valve incompetence [None]
